FAERS Safety Report 9150508 (Version 1)
Quarter: 2013Q1

REPORT INFORMATION
  Report Type: Spontaneous
  Country: US (occurrence: US)
  Receive Date: 20130308
  Receipt Date: 20130308
  Transmission Date: 20140127
  Serious: No
  Sender: FDA-Public Use
  Company Number: US-ENDO PHARMACEUTICALS INC.-OPCR20121164

PATIENT
  Age: 54 Year
  Sex: Female

DRUGS (2)
  1. OPANA ER 30MG [Suspect]
     Indication: PAIN
     Route: 048
     Dates: start: 20120427
  2. OPANA ER 30MG [Concomitant]
     Indication: PAIN
     Route: 048
     Dates: start: 2012, end: 20120426

REACTIONS (3)
  - Hallucination [Unknown]
  - Tremor [Unknown]
  - Drug ineffective [Unknown]
